FAERS Safety Report 24561605 (Version 8)
Quarter: 2024Q4

REPORT INFORMATION
  Report Type: Report from Study
  Country: ES (occurrence: ES)
  Receive Date: 20241029
  Receipt Date: 20241210
  Transmission Date: 20250114
  Serious: Yes (Hospitalization)
  Sender: ABBVIE
  Company Number: ES-ABBVIE-5962736

PATIENT
  Age: 77 Year
  Sex: Female
  Weight: 51 kg

DRUGS (2)
  1. CARBIDOPA\LEVODOPA [Suspect]
     Active Substance: CARBIDOPA\LEVODOPA
     Indication: Parkinson^s disease
     Dosage: INCREASE LOW (NIGHTTIME) FLOW AND KEEP THE SAME DOSE AT BASELINE AND EXTRA DOSE, 240 MG/ML + 12 M...
     Route: 058
     Dates: start: 20241008
  2. CARBIDOPA\LEVODOPA [Suspect]
     Active Substance: CARBIDOPA\LEVODOPA
     Dosage: FIRST ADMIN DATE 2024
     Route: 058

REACTIONS (21)
  - Hip fracture [Recovered/Resolved]
  - Gait disturbance [Recovering/Resolving]
  - Puncture site oedema [Recovered/Resolved]
  - Limb discomfort [Recovering/Resolving]
  - Arthralgia [Recovered/Resolved]
  - Puncture site erythema [Recovered/Resolved]
  - Akinesia [Recovered/Resolved]
  - Depression [Unknown]
  - Bradykinesia [Recovering/Resolving]
  - Arthralgia [Not Recovered/Not Resolved]
  - On and off phenomenon [Recovered/Resolved]
  - Paraesthesia [Recovering/Resolving]
  - Musculoskeletal stiffness [Recovered/Resolved]
  - On and off phenomenon [Recovered/Resolved]
  - Loss of personal independence in daily activities [Unknown]
  - Discomfort [Unknown]
  - Unevaluable event [Recovering/Resolving]
  - Depressed mood [Recovered/Resolved]
  - Urinary tract infection [Recovered/Resolved]
  - Mood swings [Unknown]
  - Dysstasia [Unknown]

NARRATIVE: CASE EVENT DATE: 20240101
